FAERS Safety Report 23704048 (Version 2)
Quarter: 2024Q2

REPORT INFORMATION
  Report Type: Spontaneous
  Country: US (occurrence: US)
  Receive Date: 20240403
  Receipt Date: 20240424
  Transmission Date: 20240716
  Serious: Yes (Hospitalization, Other)
  Sender: FDA-Public Use
  Company Number: US-BRISTOL-MYERS SQUIBB COMPANY-2024-048106

PATIENT
  Age: 68 Year
  Sex: Female
  Weight: 96.16 kg

DRUGS (1)
  1. REVLIMID [Suspect]
     Active Substance: LENALIDOMIDE
     Indication: Plasma cell myeloma
     Dosage: 25MG CAPSULE DAILY FOR 21 DAYS THEN OFF 7 DAYS
     Route: 048

REACTIONS (9)
  - Pneumonia [Unknown]
  - Pulmonary thrombosis [Unknown]
  - Constipation [Unknown]
  - Thrombosis [Unknown]
  - Dyspnoea [Unknown]
  - Rib fracture [Unknown]
  - Dizziness [Unknown]
  - Fluid retention [Unknown]
  - Decreased appetite [Unknown]

NARRATIVE: CASE EVENT DATE: 20240316
